FAERS Safety Report 9098644 (Version 1)
Quarter: 2013Q1

REPORT INFORMATION
  Report Type: Spontaneous
  Country: US (occurrence: US)
  Receive Date: 20130213
  Receipt Date: 20130213
  Transmission Date: 20140127
  Serious: No
  Sender: FDA-Public Use
  Company Number: US-ALLERGAN-1300271US

PATIENT
  Age: 57 Year
  Sex: Female

DRUGS (3)
  1. LASTACAFT [Suspect]
     Indication: PRODUCT USED FOR UNKNOWN INDICATION
     Dosage: 1 GTT OU QD
     Route: 047
     Dates: start: 20121106, end: 20121118
  2. PATADAY [Suspect]
     Indication: EYE ALLERGY
     Dosage: 1 GTT OU QD
     Route: 047
     Dates: start: 20121106, end: 20121118
  3. PAIN PATCH NOS [Concomitant]
     Indication: FIBROMYALGIA
     Dosage: UNK

REACTIONS (4)
  - Swelling face [Recovering/Resolving]
  - Rash papular [Not Recovered/Not Resolved]
  - Blepharal pigmentation [Not Recovered/Not Resolved]
  - Eyelid oedema [Recovering/Resolving]
